FAERS Safety Report 6067676-7 (Version None)
Quarter: 2009Q1

REPORT INFORMATION
  Report Type: 
  Country: None (occurrence: None)
  Receive Date: 20090205
  Receipt Date: 20090128
  Transmission Date: 20090719
  Serious: Yes (Life-Threatening, Hospitalization, Other)
  Sender: FDA-Public Use
  Company Number: JP-PFIZER INC-2009152708

PATIENT

DRUGS (2)
  1. SOLU-MEDROL [Suspect]
     Indication: NAUSEA
     Dosage: 125 MG, 1X/DAY
     Route: 042
     Dates: start: 20090102, end: 20090102
  2. IOPAMIDOL [Suspect]
     Indication: COMPUTERISED TOMOGRAM
     Dosage: 500 ML, 1X/DAY
     Route: 042
     Dates: start: 20090102, end: 20090102

REACTIONS (5)
  - ANAPHYLACTIC SHOCK [None]
  - BRADYCARDIA [None]
  - DYSPNOEA [None]
  - NAUSEA [None]
  - RESPIRATORY ARREST [None]
